FAERS Safety Report 11220804 (Version 2)
Quarter: 2015Q2

REPORT INFORMATION
  Report Type: Spontaneous
  Country: GB (occurrence: GB)
  Receive Date: 20150626
  Receipt Date: 20150626
  Transmission Date: 20150821
  Serious: Yes (Other)
  Sender: FDA-Public Use
  Company Number: GB-DRREDDYS-GER/UKI/15/0048897

PATIENT
  Age: 61 Year
  Sex: Male
  Weight: 135 kg

DRUGS (1)
  1. IRBESARTAN. [Suspect]
     Active Substance: IRBESARTAN
     Indication: PRODUCT USED FOR UNKNOWN INDICATION

REACTIONS (2)
  - Anosmia [Recovering/Resolving]
  - Ageusia [Recovering/Resolving]

NARRATIVE: CASE EVENT DATE: 20060610
